FAERS Safety Report 12697426 (Version 2)
Quarter: 2016Q4

REPORT INFORMATION
  Report Type: Spontaneous
  Country: US (occurrence: US)
  Receive Date: 20160830
  Receipt Date: 20161013
  Transmission Date: 20170207
  Serious: No
  Sender: FDA-Public Use
  Company Number: US-PFIZER INC-2015439306

PATIENT
  Age: 63 Year
  Sex: Male
  Weight: 62.59 kg

DRUGS (47)
  1. GABAPENTIN. [Concomitant]
     Active Substance: GABAPENTIN
     Dosage: 300 MG, UNK
     Route: 048
     Dates: end: 20151201
  2. MUCINEX [Concomitant]
     Active Substance: GUAIFENESIN
     Dosage: 1200 MG, UNK (2 TAB)
     Route: 048
     Dates: end: 20151201
  3. LORATADINE. [Concomitant]
     Active Substance: LORATADINE
     Dosage: 10 MG, UNK (AT BED TIME)
     Route: 048
     Dates: start: 20150925, end: 20151201
  4. OXYCODONE AND ACETAMINOPHEN [Concomitant]
     Active Substance: ACETAMINOPHEN\OXYCODONE HYDROCHLORIDE
     Dosage: PRN, EVERY 4 HRS
     Route: 048
     Dates: end: 20151201
  5. MAGNESIUM HYDROXIDE. [Concomitant]
     Active Substance: MAGNESIUM HYDROXIDE
     Dosage: 30 ML, DAILY (PRN), MILK OF MAGNESIUM
     Route: 048
  6. SODIUM CHLORIDE. [Concomitant]
     Active Substance: SODIUM CHLORIDE
     Indication: NASAL DRYNESS
     Dosage: UNK, EVERY 4 HRS (PRN)
     Route: 045
  7. SODIUM CHLORIDE. [Concomitant]
     Active Substance: SODIUM CHLORIDE
     Dosage: UNK, EVERY 4 HRS (PRN)
     Route: 045
     Dates: end: 20151201
  8. SODIUM CHLORIDE. [Concomitant]
     Active Substance: SODIUM CHLORIDE
     Dosage: 1000 ML, SODIUM CHLORIDE 0.9% WITH KCL
     Route: 042
  9. MULTIVITAMIN /00097801/ [Concomitant]
     Active Substance: VITAMINS
     Dosage: 1 DF, 1X/DAY
     Dates: start: 20151201
  10. VFEND [Suspect]
     Active Substance: VORICONAZOLE
     Indication: FUSARIUM INFECTION
     Dosage: 200 MG, 2X/DAY
     Route: 048
  11. FLUTICASONE [Concomitant]
     Active Substance: FLUTICASONE\FLUTICASONE PROPIONATE
     Dosage: UNK UNK, 2X/DAY
     Route: 045
     Dates: start: 20151201, end: 20151201
  12. MAGNESIUM OXIDE HEAVY [Concomitant]
     Active Substance: MAGNESIUM OXIDE
     Dosage: 400 MG, 3X/DAY
     Dates: end: 20151201
  13. TAMSULOSIN [Concomitant]
     Active Substance: TAMSULOSIN
     Dosage: 0.4 MG, UNK
     Route: 048
     Dates: end: 20151201
  14. TYLENOL [Concomitant]
     Active Substance: ACETAMINOPHEN
     Dosage: 650 MG, 4X/DAY
     Route: 048
  15. TUMS [Concomitant]
     Active Substance: CALCIUM CARBONATE
     Dosage: 500 MG, 3X/DAY, CHOW
     Route: 048
     Dates: end: 20151201
  16. BENADRYL [Concomitant]
     Active Substance: DIPHENHYDRAMINE HYDROCHLORIDE
     Dosage: 25 MG, 4X/DAY, PRN
     Route: 048
  17. BENADRYL [Concomitant]
     Active Substance: DIPHENHYDRAMINE HYDROCHLORIDE
     Dosage: 25 MG, 4X/DAY,  PRN
     Route: 042
  18. IMODIUM [Concomitant]
     Active Substance: LOPERAMIDE HYDROCHLORIDE
     Indication: DIARRHOEA
     Dosage: 2 MG, AS NEEDED
     Route: 048
  19. ULTRAM [Concomitant]
     Active Substance: TRAMADOL HYDROCHLORIDE
     Indication: PAIN
     Dosage: 50 MG, EVERY 4 HRS (PRN)
     Route: 048
     Dates: end: 20151201
  20. POTASSIUM CHLORIDE. [Concomitant]
     Active Substance: POTASSIUM CHLORIDE
     Dosage: 20 MEQ, UNK
     Route: 048
  21. ROPINIROLE. [Concomitant]
     Active Substance: ROPINIROLE
     Dosage: 20 MEQ, UNK
     Dates: start: 20151201
  22. TROLAMINE SALICYLATE. [Concomitant]
     Active Substance: TROLAMINE SALICYLATE
     Dosage: UNK, 2X/DAY, TO LOWER LEAST BILATERALLY
     Route: 061
     Dates: start: 20151025, end: 20151201
  23. HYOSCYAMINE. [Concomitant]
     Active Substance: HYOSCYAMINE
     Dosage: 0.125 MG, EVERY 4 HRS (PRN)
     Route: 048
  24. ATIVAN [Concomitant]
     Active Substance: LORAZEPAM
     Dosage: UNK, AS NEEDED (0.5MG: 0.25ML)
     Route: 042
  25. CALCIUM +VIT D [Concomitant]
     Active Substance: CALCIUM\VITAMIN D
     Dosage: 1 DF, 2X/DAY
     Route: 048
     Dates: start: 20151201, end: 20151201
  26. ONDANSETRON /00955302/ [Concomitant]
     Dosage: 8 MG, AS NEEDED
     Route: 048
  27. RESTORIL [Concomitant]
     Active Substance: TEMAZEPAM
     Dosage: UNK, AS NEEDED
  28. TAMADOL [Concomitant]
     Active Substance: TRAMADOL HYDROCHLORIDE
     Indication: PAIN
     Dosage: 100 G, EVERY 4 HRS (PRN)
     Route: 048
     Dates: end: 20151201
  29. VALACYCLOVIR [Concomitant]
     Active Substance: VALACYCLOVIR HYDROCHLORIDE
     Dosage: 500 MG, 2X/DAY
     Route: 048
     Dates: start: 20151128, end: 20151201
  30. ALBUTEROL SULFATE AND IPRATROPIUM BROMIDE [Concomitant]
     Active Substance: ALBUTEROL SULFATE\IPRATROPIUM BROMIDE
     Dosage: UNK (DUO NO3 ML NEBULIZER INHALATION, INH 02H)
     Dates: end: 20151201
  31. LIDOCAINE. [Concomitant]
     Active Substance: LIDOCAINE
     Indication: PAIN
     Dosage: UNK UNK, 4X/DAY (PRN)
     Route: 061
     Dates: start: 20151118, end: 20151201
  32. ZOFRAN [Concomitant]
     Active Substance: ONDANSETRON HYDROCHLORIDE
     Dosage: 8 MG, AS NEEDED
     Route: 042
  33. LOMOTIL [Concomitant]
     Active Substance: ATROPINE SULFATE\DIPHENOXYLATE HYDROCHLORIDE
     Dosage: 1 DF, 4X/DAY, PRN
     Route: 048
  34. DOCUSATE [Concomitant]
     Active Substance: DOCUSATE
     Dosage: UNK, 2X/DAY (PRN)
     Route: 048
  35. COMPAZINE /00013302/ [Concomitant]
     Active Substance: PROCHLORPERAZINE EDISYLATE
     Dosage: 10 MG, AS NEEDED
     Route: 048
  36. HYDROCORTISONE. [Concomitant]
     Active Substance: HYDROCORTISONE
     Dosage: UNK, 2X/DAY
     Route: 061
     Dates: start: 20151008, end: 20151201
  37. ROPINIROLE. [Concomitant]
     Active Substance: ROPINIROLE
     Dosage: 0.25 MG, UNK (AT BED TIME)
     Route: 048
     Dates: start: 20150925, end: 20151201
  38. ALUMIN HYDROXIDE/DIPHENHYDRA HCL/LIDOCAIN HCL/MG HYDROXIDE/SIMETHICONE [Concomitant]
     Dosage: 10 ML, 4X/DAY
  39. SUBLIMAZE [Concomitant]
     Active Substance: FENTANYL CITRATE
     Dosage: 100 UG, EVERY 4 HRS (PRN), 100MCG: 2 ML, IV PUSH
     Route: 042
     Dates: end: 20151201
  40. SIMETHICONE (DIMETHICONE) [Concomitant]
     Active Substance: DIMETHICONE
     Indication: ABDOMINAL PAIN
     Dosage: 40 MG, 3X/DAY, PRN
     Route: 048
     Dates: end: 20151201
  41. FINASTERIDE. [Concomitant]
     Active Substance: FINASTERIDE
     Dosage: 5 MG, DAILY
     Route: 048
     Dates: start: 20151201
  42. PROTONIX [Concomitant]
     Active Substance: PANTOPRAZOLE SODIUM
     Dosage: 40 MG, 2X/DAY
     Route: 048
  43. SODIUM CHLORIDE. [Concomitant]
     Active Substance: SODIUM CHLORIDE
     Dosage: 3 ML, 3X/DAY
     Route: 042
     Dates: start: 20151201
  44. VORICONAZOLE. [Concomitant]
     Active Substance: VORICONAZOLE
     Dosage: 200 MG, 2X/DAY
     Route: 048
     Dates: start: 20151128, end: 20151201
  45. QUESTRAN [Concomitant]
     Active Substance: CHOLESTYRAMINE
     Dosage: 4 G, UNK
     Route: 048
  46. POLYETHYLENE GLYCOL 3350. [Concomitant]
     Active Substance: POLYETHYLENE GLYCOL 3350
     Dosage: UNK, DAILY (PRN), 1 PACKET
     Route: 048
  47. BENZYL ALCOHOL/BENZYL BENZOATE/BENZYL CINNAMATE/LANOLIN/ZINC OXIDE [Concomitant]
     Dosage: UNK, 3X/DAY (PRN)
     Route: 061

REACTIONS (5)
  - Hypersomnia [Unknown]
  - Feeding disorder [Unknown]
  - Weight decreased [Unknown]
  - Malaise [Unknown]
  - Dysphagia [Unknown]
